FAERS Safety Report 6069379-1 (Version None)
Quarter: 2009Q1

REPORT INFORMATION
  Report Type: 
  Country: None (occurrence: None)
  Receive Date: 20090206
  Receipt Date: 20090126
  Transmission Date: 20090719
  Serious: Yes (Hospitalization)
  Sender: FDA-Public Use
  Company Number: GB-ELI_LILLY_AND_COMPANY-GB200901005132

PATIENT
  Age: 80 Year
  Sex: Female

DRUGS (2)
  1. ZYPREXA [Suspect]
     Dosage: 2.5 MG, UNK
  2. ZYPREXA [Suspect]
     Dosage: 7.5 MG, UNK

REACTIONS (2)
  - EXTRAPYRAMIDAL DISORDER [None]
  - HOSPITALISATION [None]
